FAERS Safety Report 11546087 (Version 2)
Quarter: 2017Q3

REPORT INFORMATION
  Report Type: Spontaneous
  Country: CH (occurrence: CH)
  Receive Date: 20150924
  Receipt Date: 20170915
  Transmission Date: 20171127
  Serious: Yes (Death, Other)
  Sender: FDA-Public Use
  Company Number: CH-PFIZER INC-2015319831

PATIENT
  Age: 72 Year
  Sex: Male

DRUGS (19)
  1. SALBUTAMOL [Concomitant]
     Active Substance: ALBUTEROL
     Dosage: UNK
     Route: 055
  2. HALDOL [Concomitant]
     Active Substance: HALOPERIDOL
     Dosage: UNK
  3. IPRATROPIUM [Concomitant]
     Active Substance: IPRATROPIUM
     Dosage: UNK
     Route: 055
  4. TEMGESIC [Concomitant]
     Active Substance: BUPRENORPHINE HYDROCHLORIDE
     Dosage: UNK
     Route: 060
  5. CEFEPIME [Concomitant]
     Active Substance: CEFEPIME HYDROCHLORIDE
     Dosage: UNK
     Route: 041
     Dates: start: 20150805, end: 20150809
  6. ROCEPHINE [Concomitant]
     Active Substance: CEFTRIAXONE SODIUM
     Indication: PNEUMONIA
     Dosage: UNK
     Route: 041
     Dates: start: 20150629, end: 20150703
  7. TAZOBAC [Suspect]
     Active Substance: PIPERACILLIN SODIUM\TAZOBACTAM SODIUM
     Dosage: UNK
     Route: 041
     Dates: start: 20150727, end: 20150802
  8. MEROPENEM. [Suspect]
     Active Substance: MEROPENEM
     Indication: PSEUDOMONAL BACTERAEMIA
     Dosage: UNK
     Route: 041
     Dates: start: 20150709, end: 20150718
  9. LASIX [Concomitant]
     Active Substance: FUROSEMIDE
     Dosage: UNK
     Route: 041
     Dates: start: 20150703, end: 20150811
  10. TOREM /01036501/ [Concomitant]
     Active Substance: TORSEMIDE
     Dosage: UNK
     Route: 048
     Dates: start: 20150728, end: 20150804
  11. METOPROLOL. [Concomitant]
     Active Substance: METOPROLOL
     Dosage: UNK
     Route: 048
  12. DISTRANEURIN /00027501/ [Concomitant]
     Active Substance: CLOMETHIAZOLE
     Route: 048
  13. AMIKACINE /00391001/ [Concomitant]
     Active Substance: AMIKACIN
     Indication: SEPTIC SHOCK
     Dosage: UNK
     Route: 041
     Dates: start: 20150805, end: 20150806
  14. ATARAX [Concomitant]
     Active Substance: HYDROXYZINE HYDROCHLORIDE
     Dosage: UNK
     Route: 048
     Dates: start: 20150704, end: 20150708
  15. CEFEPIME [Concomitant]
     Active Substance: CEFEPIME HYDROCHLORIDE
     Indication: SEPTIC SHOCK
     Dosage: UNK
     Route: 041
     Dates: start: 20150703, end: 20150709
  16. AMLODIPIN /00972401/ [Concomitant]
     Active Substance: AMLODIPINE BESYLATE
     Dosage: UNK
     Route: 048
  17. PULMICORT TURBUHALER [Concomitant]
     Active Substance: BUDESONIDE
     Dosage: UNK
     Route: 055
  18. KLACID /00984601/ [Concomitant]
     Active Substance: CLARITHROMYCIN
     Indication: PNEUMONIA
     Dosage: UNK
     Route: 041
     Dates: start: 20150629, end: 20150703
  19. MEROPENEM. [Suspect]
     Active Substance: MEROPENEM
     Indication: PNEUMONIA
     Dosage: UNK
     Route: 041
     Dates: start: 20150725, end: 20150727

REACTIONS (6)
  - Acute kidney injury [Fatal]
  - Eosinophilia [Recovered/Resolved]
  - Multiple organ dysfunction syndrome [Fatal]
  - Acute respiratory distress syndrome [Fatal]
  - Tubulointerstitial nephritis [Fatal]
  - Septic shock [Fatal]

NARRATIVE: CASE EVENT DATE: 20150712
